FAERS Safety Report 7419324 (Version 7)
Quarter: 2013Q1

REPORT INFORMATION
  Report Type: Spontaneous
  Country: US (occurrence: US)
  Receive Date: 20100615
  Receipt Date: 20130226
  Transmission Date: 20140127
  Serious: No
  Sender: FDA-Public Use
  Company Number: US-BIOGENIDEC-2010BI019024

PATIENT
  Age: 58 Year
  Sex: Male

DRUGS (4)
  1. TYSABRI [Suspect]
     Indication: MULTIPLE SCLEROSIS
     Route: 042
     Dates: start: 20061205
  2. FAMPRIDINE [Concomitant]
     Dates: start: 20100420, end: 20100519
  3. FAMPRIDINE [Concomitant]
     Dates: start: 20100520
  4. AMPYRA [Concomitant]

REACTIONS (3)
  - Confusional state [Recovered/Resolved]
  - CD4 lymphocytes increased [Recovered/Resolved]
  - Fall [Recovered/Resolved]
